FAERS Safety Report 25927021 (Version 5)
Quarter: 2025Q4

REPORT INFORMATION
  Report Type: Report from Study
  Country: EU (occurrence: EU)
  Receive Date: 20251015
  Receipt Date: 20251127
  Transmission Date: 20260118
  Serious: Yes (Hospitalization)
  Sender: ABBVIE
  Company Number: EU-ABBVIE-6501307

PATIENT
  Age: 69 Year
  Sex: Female
  Weight: 87 kg

DRUGS (6)
  1. RISANKIZUMAB [Suspect]
     Active Substance: RISANKIZUMAB
     Indication: Crohn^s disease
     Route: 058
     Dates: start: 20241001, end: 20250902
  2. RISANKIZUMAB [Suspect]
     Active Substance: RISANKIZUMAB
     Indication: Crohn^s disease
     Route: 042
     Dates: start: 20240711, end: 20240903
  3. CARVEDILOL [Concomitant]
     Active Substance: CARVEDILOL
     Indication: Antiphospholipid syndrome
     Route: 048
     Dates: start: 202406
  4. WARFARIN [Concomitant]
     Active Substance: WARFARIN
     Indication: Antiphospholipid syndrome
     Route: 048
     Dates: start: 20240918
  5. NOLOTIL [Concomitant]
     Indication: Arthralgia
     Dosage: TIME INTERVAL: AS NECESSARY
     Route: 048
     Dates: start: 20240806
  6. BECLOMETHASONE DIPROPIONATE\FORMOTEROL FUMARATE\GLYCOPYRROLATE [Concomitant]
     Active Substance: BECLOMETHASONE DIPROPIONATE\FORMOTEROL FUMARATE\GLYCOPYRROLATE
     Indication: Chronic obstructive pulmonary disease
     Dosage: 87/5/9 UG, QID?ROA: RESPIRATORY (INHALATION)
     Dates: start: 20250108

REACTIONS (3)
  - Leiomyosarcoma [Recovered/Resolved]
  - Abdominal neoplasm [Recovered/Resolved]
  - Postoperative wound infection [Recovered/Resolved]

NARRATIVE: CASE EVENT DATE: 20250717
